FAERS Safety Report 10267460 (Version 1)
Quarter: 2014Q2

REPORT INFORMATION
  Report Type: Spontaneous
  Country: IN (occurrence: IN)
  Receive Date: 20140630
  Receipt Date: 20140630
  Transmission Date: 20141212
  Serious: Yes (Life-Threatening, Hospitalization)
  Sender: FDA-Public Use
  Company Number: IN-PFIZER INC-2014179490

PATIENT
  Age: 42 Year
  Sex: Male

DRUGS (1)
  1. AMLODIPINE BESILATE [Suspect]
     Indication: HYPERTENSION
     Dosage: 500 MG, (TOTAL DOSE)

REACTIONS (4)
  - Overdose [Recovering/Resolving]
  - Shock [Recovering/Resolving]
  - Somnolence [Recovering/Resolving]
  - Heart rate decreased [Recovering/Resolving]
